FAERS Safety Report 20746383 (Version 1)
Quarter: 2022Q2

REPORT INFORMATION
  Report Type: Spontaneous
  Country: US (occurrence: US)
  Receive Date: 20220425
  Receipt Date: 20220425
  Transmission Date: 20220721
  Serious: No
  Sender: FDA-Public Use
  Company Number: US-JNJFOC-20220427360

PATIENT
  Age: 59 Year
  Sex: Female

DRUGS (2)
  1. TREMFYA [Suspect]
     Active Substance: GUSELKUMAB
     Indication: Psoriasis
     Route: 065
     Dates: start: 201901
  2. COVID-19 VACCINE [Concomitant]
     Indication: COVID-19 prophylaxis

REACTIONS (1)
  - Nonspecific reaction [Unknown]

NARRATIVE: CASE EVENT DATE: 20220412
